FAERS Safety Report 9224413 (Version 3)
Quarter: 2014Q2

REPORT INFORMATION
  Report Type: Spontaneous
  Country: US (occurrence: US)
  Receive Date: 20130411
  Receipt Date: 20140409
  Transmission Date: 20141212
  Serious: Yes (Hospitalization)
  Sender: FDA-Public Use
  Company Number: US-BAYER-2013-043891

PATIENT
  Age: 32 Year
  Sex: Female
  Weight: 62 kg

DRUGS (8)
  1. OCELLA [Suspect]
     Indication: ACNE
     Dosage: UNK
     Dates: start: 20110324, end: 20120902
  2. OCELLA [Suspect]
     Indication: ACNE
     Dosage: UNK
     Dates: start: 2002, end: 201208
  3. OCELLA [Suspect]
     Indication: ACNE
     Dosage: UNK
     Dates: start: 2002, end: 201208
  4. OCELLA [Suspect]
     Indication: ACNE
     Dosage: UNK
     Dates: start: 2002, end: 201208
  5. OCELLA [Suspect]
     Indication: ACNE
     Dosage: UNK
     Dates: start: 2002, end: 201208
  6. OCELLA [Suspect]
     Indication: ACNE
     Dosage: UNK
     Dates: start: 2002, end: 201208
  7. YAZ [Suspect]
     Indication: ACNE
     Dosage: UNK
     Dates: start: 2002, end: 201208
  8. YASMIN [Suspect]
     Indication: ACNE
     Dosage: UNK
     Dates: start: 2002, end: 201208

REACTIONS (8)
  - Deep vein thrombosis [None]
  - Injury [None]
  - Pain [None]
  - Emotional distress [None]
  - Fear of disease [None]
  - Anhedonia [None]
  - Pain [None]
  - Off label use [None]
